FAERS Safety Report 13260653 (Version 2)
Quarter: 2017Q1

REPORT INFORMATION
  Report Type: Spontaneous
  Country: CZ (occurrence: CZ)
  Receive Date: 20170222
  Receipt Date: 20170307
  Transmission Date: 20170428
  Serious: Yes (Death, Life-Threatening, Hospitalization)
  Sender: FDA-Public Use
  Company Number: CZ-009507513-1702CZE009448

PATIENT
  Age: 67 Year
  Sex: Male

DRUGS (2)
  1. JANUMET [Suspect]
     Active Substance: METFORMIN HYDROCHLORIDE\SITAGLIPTIN PHOSPHATE
     Indication: DIABETES MELLITUS
     Dosage: 1 DF, BID (1-0-1)
     Route: 048
     Dates: start: 20170120, end: 20170125
  2. SIOFOR [Suspect]
     Active Substance: METFORMIN HYDROCHLORIDE
     Indication: DIABETES MELLITUS
     Dosage: 1000 MG, QD (0-1-0)
     Route: 048
     Dates: start: 20170120, end: 20170125

REACTIONS (4)
  - Pulmonary embolism [Fatal]
  - Lactic acidosis [Unknown]
  - Respiratory failure [Unknown]
  - Renal failure [Unknown]

NARRATIVE: CASE EVENT DATE: 20170125
